FAERS Safety Report 19132709 (Version 1)
Quarter: 2021Q2

REPORT INFORMATION
  Report Type: Spontaneous
  Country: US (occurrence: US)
  Receive Date: 20210413
  Receipt Date: 20210413
  Transmission Date: 20210717
  Serious: Yes (Disabling)
  Sender: FDA-Public Use
  Company Number: None

PATIENT
  Age: 32 Year
  Sex: Male
  Weight: 90 kg

DRUGS (1)
  1. CIPROFLOXACIN. [Suspect]
     Active Substance: CIPROFLOXACIN
     Indication: DRUG THERAPY
     Dosage: ?          QUANTITY:2 TABLET(S);?
     Route: 048
     Dates: start: 20200602, end: 20200603

REACTIONS (9)
  - Tendon pain [None]
  - Photophobia [None]
  - Bedridden [None]
  - Neuropathy peripheral [None]
  - Tendon disorder [None]
  - Tendon rupture [None]
  - Insomnia [None]
  - Tendonitis [None]
  - Eye pain [None]

NARRATIVE: CASE EVENT DATE: 20200603
